FAERS Safety Report 5646860-8 (Version None)
Quarter: 2008Q1

REPORT INFORMATION
  Report Type: 
  Country: None (occurrence: None)
  Receive Date: 20080229
  Receipt Date: 20080229
  Transmission Date: 20080703
  Serious: Yes (Disabling)
  Sender: FDA-Public Use
  Company Number: None

PATIENT
  Sex: Female
  Weight: 63.5036 kg

DRUGS (1)
  1. ZETIA [Suspect]
     Indication: BLOOD CHOLESTEROL
     Dosage: 10MG 1 A DAY
     Dates: start: 20020101, end: 20070601

REACTIONS (3)
  - BURNING SENSATION [None]
  - DYSSTASIA [None]
  - MUSCULAR WEAKNESS [None]
